FAERS Safety Report 16742675 (Version 1)
Quarter: 2019Q3

REPORT INFORMATION
  Report Type: Spontaneous
  Country: TN (occurrence: TN)
  Receive Date: 20190826
  Receipt Date: 20190826
  Transmission Date: 20191005
  Serious: Yes (Hospitalization)
  Sender: FDA-Public Use
  Company Number: TN-ANIPHARMA-2019-TN-000007

PATIENT
  Age: 18 Year
  Sex: Male

DRUGS (2)
  1. ACEBUTOLOL HYDROCHLORIDE (NON-SPECIFIC) [Suspect]
     Active Substance: ACEBUTOLOL HYDROCHLORIDE
     Indication: PRODUCT USED FOR UNKNOWN INDICATION
     Dosage: 5600 MG
     Route: 048
  2. EPINEPHRINE. [Suspect]
     Active Substance: EPINEPHRINE
     Indication: HYPOTENSION
     Dosage: 0.14 MICROGRAM/KG/MIN
     Route: 042

REACTIONS (5)
  - Stress cardiomyopathy [Recovered/Resolved]
  - Hypotension [Recovered/Resolved]
  - Atrioventricular block [Recovered/Resolved]
  - Bundle branch block [Recovered/Resolved]
  - Suicide attempt [Recovered/Resolved]
